FAERS Safety Report 11118226 (Version 1)
Quarter: 2015Q2

REPORT INFORMATION
  Report Type: Spontaneous
  Country: US (occurrence: US)
  Receive Date: 20150518
  Receipt Date: 20150518
  Transmission Date: 20150821
  Serious: Yes (Life-Threatening, Other)
  Sender: FDA-Public Use
  Company Number: US-GLENMARK PHARMACEUTICALS EUROPE LIMITED-2015GMK016731

PATIENT
  Age: 17 Year
  Sex: Male

DRUGS (2)
  1. LAMOTRIGINE. [Suspect]
     Active Substance: LAMOTRIGINE
     Indication: FRONTAL LOBE EPILEPSY
  2. CARBAMAZEPINE. [Suspect]
     Active Substance: CARBAMAZEPINE
     Indication: FRONTAL LOBE EPILEPSY

REACTIONS (3)
  - Seizure [Unknown]
  - Drug ineffective [Unknown]
  - Cardiac arrest [Unknown]
